FAERS Safety Report 25039017 (Version 1)
Quarter: 2025Q1

REPORT INFORMATION
  Report Type: Spontaneous
  Country: US (occurrence: US)
  Receive Date: 20250305
  Receipt Date: 20250305
  Transmission Date: 20250409
  Serious: Yes (Death, Hospitalization, Other)
  Sender: UNITED THERAPEUTICS
  Company Number: US-UNITED THERAPEUTICS-UNT-2022-006032

PATIENT
  Age: 73 Year
  Sex: Female

DRUGS (5)
  1. TYVASO [Suspect]
     Active Substance: TREPROSTINIL
     Indication: Pulmonary arterial hypertension
     Dosage: 54 ?G, QID
  2. TYVASO [Suspect]
     Active Substance: TREPROSTINIL
  3. TYVASO [Suspect]
     Active Substance: TREPROSTINIL
  4. REMODULIN [Suspect]
     Active Substance: TREPROSTINIL
     Indication: Pulmonary arterial hypertension
     Route: 041
  5. BOSENTAN [Concomitant]
     Active Substance: BOSENTAN
     Indication: Pulmonary arterial hypertension
     Dosage: 125 MG, BID
     Dates: start: 202101, end: 20220325

REACTIONS (2)
  - Pulmonary arterial hypertension [Fatal]
  - Hypotension [Unknown]

NARRATIVE: CASE EVENT DATE: 20220301
